FAERS Safety Report 9133116 (Version 1)
Quarter: 2013Q1

REPORT INFORMATION
  Report Type: Spontaneous
  Country: US (occurrence: US)
  Receive Date: 20130301
  Receipt Date: 20130301
  Transmission Date: 20140127
  Serious: Yes (Other)
  Sender: FDA-Public Use
  Company Number: US-BAXTER-2013BAX006671

PATIENT
  Sex: Female

DRUGS (7)
  1. DIANEAL LOW CALCIUM [Suspect]
     Indication: PERITONEAL DIALYSIS
     Route: 033
     Dates: start: 20100414, end: 20130109
  2. DIANEAL LOW CALCIUM [Suspect]
     Route: 033
     Dates: start: 20130206, end: 20130213
  3. DIANEAL LOW CALCIUM [Suspect]
     Route: 033
     Dates: start: 20130213
  4. DIANEAL LOW CALCIUM [Suspect]
     Indication: PERITONEAL DIALYSIS
     Route: 033
     Dates: start: 20100414, end: 20130109
  5. DIANEAL LOW CALCIUM [Suspect]
     Route: 033
     Dates: start: 20130206, end: 20130213
  6. DIANEAL LOW CALCIUM [Suspect]
     Route: 033
     Dates: start: 20130213
  7. SYNTHROID [Concomitant]
     Indication: HYPOTHYROIDISM
     Route: 048

REACTIONS (2)
  - Hernia [Recovered/Resolved]
  - Hypertension [Recovered/Resolved]
